FAERS Safety Report 21511657 (Version 2)
Quarter: 2025Q2

REPORT INFORMATION
  Report Type: Spontaneous
  Country: GB (occurrence: GB)
  Receive Date: 20221027
  Receipt Date: 20250614
  Transmission Date: 20250717
  Serious: Yes (Other)
  Sender: AUROBINDO
  Company Number: GB-AUROBINDO-AUR-APL-2022-041696

PATIENT
  Age: 48 Year
  Sex: Male

DRUGS (24)
  1. TRAMADOL [Suspect]
     Active Substance: TRAMADOL
     Indication: Pain
     Dosage: 100 MILLIGRAM, FOUR TIMES/DAY (DOSE WAS RAPIDLY INCREASED)
     Route: 065
  2. TRAMADOL [Suspect]
     Active Substance: TRAMADOL
     Indication: Analgesic therapy
     Route: 065
  3. BACLOFEN [Suspect]
     Active Substance: BACLOFEN
     Indication: Muscle spasms
     Dosage: 30 MILLIGRAM, FOUR TIMES/DAY (FREQUENCY OF ORAL BACLOFEN WAS INCREASED)
     Route: 048
  4. BACLOFEN [Suspect]
     Active Substance: BACLOFEN
     Dosage: 30 MILLIGRAM, 3 TIMES A DAY
     Route: 048
  5. FLUCLOXACILLIN [Concomitant]
     Active Substance: FLUCLOXACILLIN
     Indication: Antibiotic prophylaxis
     Route: 065
  6. GENTAMICIN [Concomitant]
     Active Substance: GENTAMICIN
     Indication: Antibiotic prophylaxis
     Route: 065
  7. TEICOPLANIN [Concomitant]
     Active Substance: TEICOPLANIN
     Indication: Antibiotic prophylaxis
     Route: 042
  8. LINEZOLID [Concomitant]
     Active Substance: LINEZOLID
     Indication: Antibiotic prophylaxis
     Route: 048
  9. MEROPENEM [Concomitant]
     Active Substance: MEROPENEM
     Indication: Antibiotic prophylaxis
     Route: 042
  10. ERTAPENEM [Concomitant]
     Active Substance: ERTAPENEM
     Indication: Antibiotic prophylaxis
     Route: 065
  11. DOXYCYCLINE [Concomitant]
     Active Substance: DOXYCYCLINE
     Indication: Antibiotic prophylaxis
     Route: 048
  12. COTRIMOXAZOLE [Concomitant]
     Active Substance: SULFAMETHOXAZOLE\TRIMETHOPRIM
     Indication: Antibiotic prophylaxis
     Route: 048
  13. CLONAZEPAM [Concomitant]
     Active Substance: CLONAZEPAM
     Indication: Muscle spasms
     Dosage: 250 MICROGRAM, ONCE A DAY (NIGHTLY)
     Route: 065
  14. CLONAZEPAM [Concomitant]
     Active Substance: CLONAZEPAM
     Route: 065
  15. CLONAZEPAM [Concomitant]
     Active Substance: CLONAZEPAM
     Dosage: 500 MILLIGRAM, ONCE A DAY (DOSE INCREASED)
     Route: 065
  16. TIZANIDINE [Concomitant]
     Active Substance: TIZANIDINE
     Indication: Muscle spasms
     Dosage: 2 MILLIGRAM, TWO TIMES A DAY
     Route: 065
  17. TIZANIDINE [Concomitant]
     Active Substance: TIZANIDINE
     Dosage: 4 MILLIGRAM, FOUR TIMES/DAY (DOSE INCREASED)
     Route: 065
  18. PROPOFOL [Concomitant]
     Active Substance: PROPOFOL
     Indication: Seizure
     Route: 042
  19. PROPOFOL [Concomitant]
     Active Substance: PROPOFOL
     Dosage: 4 MILLIGRAM, FOUR TIMES/DAY
     Route: 042
  20. PROPOFOL [Concomitant]
     Active Substance: PROPOFOL
     Route: 042
  21. PROPOFOL [Concomitant]
     Active Substance: PROPOFOL
     Dosage: 20 MILLIGRAM, EVERY HOUR
     Route: 042
  22. PROPOFOL [Concomitant]
     Active Substance: PROPOFOL
     Route: 042
  23. PROPOFOL [Concomitant]
     Active Substance: PROPOFOL
     Dosage: 60 MILLIGRAM, EVERY HOUR (FINAL DOSE)
     Route: 042
  24. ACETAMINOPHEN [Concomitant]
     Active Substance: ACETAMINOPHEN
     Indication: Analgesic therapy
     Route: 065

REACTIONS (2)
  - Bradyphrenia [Unknown]
  - Mental impairment [Unknown]
